FAERS Safety Report 12840953 (Version 1)
Quarter: 2016Q4

REPORT INFORMATION
  Report Type: Spontaneous
  Country: US (occurrence: US)
  Receive Date: 20161012
  Receipt Date: 20161012
  Transmission Date: 20170207
  Serious: Yes (Other)
  Sender: FDA-Public Use
  Company Number: US-ASTRAZENECA-2016SF06439

PATIENT
  Sex: Female

DRUGS (7)
  1. FENTANYL TRANSDERMAL SYSTEM [Concomitant]
     Active Substance: FENTANYL
  2. ZOFRAN [Concomitant]
     Active Substance: ONDANSETRON HYDROCHLORIDE
     Indication: NAUSEA
  3. PATCH FOR PAIN [Concomitant]
     Indication: PAIN
  4. DILAUDID [Concomitant]
     Active Substance: HYDROMORPHONE HYDROCHLORIDE
  5. LYNPARZA [Suspect]
     Active Substance: OLAPARIB
     Route: 048
  6. ATIVAN [Concomitant]
     Active Substance: LORAZEPAM
     Indication: MOOD ALTERED
  7. PATCH FOR NAUSEA [Concomitant]
     Indication: NAUSEA

REACTIONS (10)
  - Suicidal ideation [Unknown]
  - Malaise [Unknown]
  - Onychalgia [Unknown]
  - Pain [Unknown]
  - Neuropathy peripheral [Unknown]
  - Pain in extremity [Unknown]
  - Vomiting [Unknown]
  - Dizziness [Unknown]
  - Nausea [Unknown]
  - Intentional product misuse [Unknown]
